FAERS Safety Report 20472772 (Version 1)
Quarter: 2022Q1

REPORT INFORMATION
  Report Type: Spontaneous
  Country: GB (occurrence: GB)
  Receive Date: 20220215
  Receipt Date: 20220215
  Transmission Date: 20220424
  Serious: Yes (Other)
  Sender: FDA-Public Use
  Company Number: GB-MHRA-WEBRADR-202202031118274950-7WLBF

PATIENT
  Age: 27 Year
  Sex: Male
  Weight: 80 kg

DRUGS (1)
  1. CIPROFLOXACIN [Suspect]
     Active Substance: CIPROFLOXACIN
     Indication: Prostatitis
     Dosage: 500 MILLIGRAM
     Route: 048
     Dates: start: 20220201, end: 20220201

REACTIONS (4)
  - Arthralgia [Unknown]
  - Paraesthesia [Not Recovered/Not Resolved]
  - Pain [Recovering/Resolving]
  - Muscle spasms [Recovering/Resolving]
